FAERS Safety Report 22538855 (Version 2)
Quarter: 2023Q2

REPORT INFORMATION
  Report Type: Spontaneous
  Country: US (occurrence: US)
  Receive Date: 20230609
  Receipt Date: 20230612
  Transmission Date: 20230721
  Serious: Yes (Other)
  Sender: FDA-Public Use
  Company Number: US-ABBVIE-5283024

PATIENT
  Age: 31 Year
  Sex: Female
  Weight: 43.091 kg

DRUGS (6)
  1. DEPAKOTE [Suspect]
     Active Substance: DIVALPROEX SODIUM
     Indication: Seizure
     Dosage: 250 MG
     Route: 048
     Dates: start: 1993
  2. DEPAKOTE [Suspect]
     Active Substance: DIVALPROEX SODIUM
     Indication: Seizure
     Route: 065
  3. FINTEPLA [Concomitant]
     Active Substance: FENFLURAMINE
     Indication: Seizure
  4. BRIVIACT [Concomitant]
     Active Substance: BRIVARACETAM
     Indication: Seizure
  5. EPIDIOLEX [Concomitant]
     Active Substance: CANNABIDIOL
     Indication: Seizure
  6. BANZEL [Concomitant]
     Active Substance: RUFINAMIDE
     Indication: Seizure

REACTIONS (1)
  - Seizure [Not Recovered/Not Resolved]

NARRATIVE: CASE EVENT DATE: 20230606
